FAERS Safety Report 22706283 (Version 5)
Quarter: 2024Q4

REPORT INFORMATION
  Report Type: Report from Study
  Country: CA (occurrence: CA)
  Receive Date: 20230714
  Receipt Date: 20241021
  Transmission Date: 20250114
  Serious: Yes (Hospitalization, Other)
  Sender: SANDOZ
  Company Number: CA-SANDOZ-SDZ2023CA000137

PATIENT
  Sex: Female

DRUGS (2)
  1. HYRIMOZ [Suspect]
     Active Substance: ADALIMUMAB-ADAZ
     Indication: Crohn^s disease
     Dosage: 40 MG/0.8ML, QW
     Route: 058
     Dates: start: 20220506
  2. HYRIMOZ [Suspect]
     Active Substance: ADALIMUMAB-ADAZ
     Indication: Ankylosing spondylitis
     Dosage: 40 MG, Q2W
     Route: 058
     Dates: start: 20220506

REACTIONS (7)
  - Crohn^s disease [Unknown]
  - Intestinal obstruction [Unknown]
  - Female genital tract fistula [Unknown]
  - Aphthous ulcer [Unknown]
  - Malaise [Unknown]
  - General physical health deterioration [Unknown]
  - Off label use [Unknown]
